FAERS Safety Report 9835968 (Version 2)
Quarter: 2014Q1

REPORT INFORMATION
  Report Type: Spontaneous
  Country: MX (occurrence: MX)
  Receive Date: 20140122
  Receipt Date: 20140221
  Transmission Date: 20141002
  Serious: Yes (Other)
  Sender: FDA-Public Use
  Company Number: MX-BIOMARINAP-MX-2014-102249

PATIENT
  Age: 5 Year
  Sex: Male

DRUGS (7)
  1. NAGLAZYME [Suspect]
     Indication: PRODUCT USED FOR UNKNOWN INDICATION
     Dosage: 15 MG, QW
     Route: 041
     Dates: start: 20140113
  2. PARACETAMOL [Concomitant]
     Indication: PREMEDICATION
  3. CHLORPHENAMINE [Concomitant]
     Indication: PREMEDICATION
  4. HYDROCORTISONE [Concomitant]
     Indication: PREMEDICATION
  5. CHLOR-TRIMETON [Concomitant]
     Indication: PRODUCT USED FOR UNKNOWN INDICATION
  6. ONDANSETRON [Concomitant]
     Indication: PRODUCT USED FOR UNKNOWN INDICATION
  7. PARACETAMOL [Concomitant]
     Indication: PRODUCT USED FOR UNKNOWN INDICATION

REACTIONS (4)
  - Blindness transient [Recovered/Resolved]
  - Dyspnoea [Recovered/Resolved]
  - Pallor [Recovered/Resolved]
  - Somnolence [Recovered/Resolved]
